FAERS Safety Report 9778895 (Version 3)
Quarter: 2014Q3

REPORT INFORMATION
  Report Type: Report from Study
  Country: JP (occurrence: JP)
  Receive Date: 20131223
  Receipt Date: 20140904
  Transmission Date: 20150326
  Serious: Yes (Hospitalization)
  Sender: FDA-Public Use
  Company Number: JP-PFIZER INC-2013361618

PATIENT
  Age: 64 Year
  Sex: Female
  Weight: 39.9 kg

DRUGS (4)
  1. XALKORI [Suspect]
     Active Substance: CRIZOTINIB
     Dosage: 200 MG, 2X/DAY
     Route: 048
     Dates: start: 20130326, end: 20130530
  2. XALKORI [Suspect]
     Active Substance: CRIZOTINIB
     Dosage: 200 MG, 2X/DAY
     Route: 048
     Dates: start: 20121029, end: 20130311
  3. XALKORI [Suspect]
     Active Substance: CRIZOTINIB
     Indication: NON-SMALL CELL LUNG CANCER
     Dosage: 250 MG, 2X/DAY
     Route: 048
     Dates: start: 20120601, end: 20121020
  4. NEXIUM [Concomitant]
     Active Substance: ESOMEPRAZOLE MAGNESIUM
     Dosage: 20 MG, 1X/DAY
     Route: 048
     Dates: start: 20121022

REACTIONS (1)
  - Enterocolitis [Recovered/Resolved]

NARRATIVE: CASE EVENT DATE: 20130531
